FAERS Safety Report 4297320-0 (Version None)
Quarter: 2004Q1

REPORT INFORMATION
  Report Type: 
  Country: None (occurrence: None)
  Receive Date: 20040213
  Receipt Date: 20040204
  Transmission Date: 20041129
  Serious: Yes (Hospitalization, Other)
  Sender: FDA-Public Use
  Company Number: US-JNJFOC-20040200914

PATIENT
  Age: 57 Year
  Sex: Female
  Weight: 59.8748 kg

DRUGS (15)
  1. REMICADE [Suspect]
     Indication: RHEUMATOID ARTHRITIS
     Dosage: INTRAVENOUS
     Route: 042
     Dates: start: 20020101
  2. REMICADE [Suspect]
     Indication: RHEUMATOID ARTHRITIS
     Dosage: INTRAVENOUS
     Route: 042
     Dates: start: 20030605
  3. REMICADE [Suspect]
     Indication: RHEUMATOID ARTHRITIS
     Dosage: INTRAVENOUS
     Route: 042
     Dates: start: 20030719
  4. CEPHALEXIN [Concomitant]
  5. COUMADIN [Concomitant]
  6. DIAZIDE (ISONIAZID) [Concomitant]
  7. SYNTHROID [Concomitant]
  8. POTASSIUM CHLORIDE [Concomitant]
  9. MENOCYCLINE (MINOCYCLINE) [Concomitant]
  10. KEFLEX [Concomitant]
  11. PLAQUENIL [Concomitant]
  12. PREVACID [Concomitant]
  13. DIFLUCAN (LANSOPRAZOLE) [Concomitant]
  14. NONE [Concomitant]
  15. PREDNISONE [Concomitant]

REACTIONS (5)
  - BONE INFECTION [None]
  - JOINT SWELLING [None]
  - LOWER LIMB DEFORMITY [None]
  - SKIN DISCOLOURATION [None]
  - THROMBOSIS [None]
